FAERS Safety Report 21577353 (Version 3)
Quarter: 2023Q1

REPORT INFORMATION
  Report Type: Spontaneous
  Country: PK (occurrence: None)
  Receive Date: 20221110
  Receipt Date: 20230222
  Transmission Date: 20230417
  Serious: Yes (Disabling, Other)
  Sender: FDA-Public Use
  Company Number: PK-ROCHE-3213690

PATIENT
  Age: 40 Year
  Sex: Female

DRUGS (3)
  1. OCREVUS [Suspect]
     Active Substance: OCRELIZUMAB
     Indication: Multiple sclerosis
     Route: 065
  2. SOLU-MEDROL [Concomitant]
     Active Substance: METHYLPREDNISOLONE SODIUM SUCCINATE
     Dates: start: 20220326
  3. ASPIRIN [Concomitant]
     Active Substance: ASPIRIN
     Dates: start: 20220326

REACTIONS (7)
  - Drug ineffective [Unknown]
  - Dysarthria [Unknown]
  - Product counterfeit [Unknown]
  - Product storage error [Unknown]
  - Infusion related reaction [Unknown]
  - Rash [Unknown]
  - Swelling face [Unknown]
